FAERS Safety Report 9872973 (Version 2)
Quarter: 2014Q1

REPORT INFORMATION
  Report Type: Other
  Country: US (occurrence: US)
  Receive Date: 20140206
  Receipt Date: 20140206
  Transmission Date: 20141002
  Serious: No
  Sender: FDA-Public Use
  Company Number: US-ACORDA-ACO_30574_2012

PATIENT
  Sex: Female

DRUGS (2)
  1. AMPYRA [Suspect]
     Indication: PRODUCT USED FOR UNKNOWN INDICATION
     Dosage: 10 MG, Q 12 HRS
     Route: 048
     Dates: start: 20120222, end: 2013
  2. AMPYRA [Suspect]
     Dosage: UNK, BID
     Dates: start: 20130612

REACTIONS (4)
  - Throat irritation [Unknown]
  - Hypersensitivity [Unknown]
  - Gait disturbance [Unknown]
  - Urinary tract infection [Unknown]
